FAERS Safety Report 4722456-7 (Version None)
Quarter: 2005Q3

REPORT INFORMATION
  Report Type: 
  Country: None (occurrence: None)
  Receive Date: 20050722
  Receipt Date: 20050422
  Transmission Date: 20060218
  Serious: No
  Sender: FDA-Public Use
  Company Number: US-GLAXOSMITHKLINE-A0556042A

PATIENT
  Age: 73 Year
  Sex: Female
  Weight: 89.5 kg

DRUGS (6)
  1. AVANDIA [Suspect]
     Route: 048
     Dates: start: 20020101
  2. LANTUS [Concomitant]
  3. METFORMIN [Concomitant]
  4. FISH OIL [Concomitant]
  5. AMARYL [Concomitant]
  6. ZOCOR [Concomitant]

REACTIONS (1)
  - SKIN ODOUR ABNORMAL [None]
